FAERS Safety Report 18534760 (Version 1)
Quarter: 2020Q4

REPORT INFORMATION
  Report Type: Spontaneous
  Country: US (occurrence: US)
  Receive Date: 20201123
  Receipt Date: 20201123
  Transmission Date: 20210114
  Serious: Yes (Other)
  Sender: FDA-Public Use
  Company Number: US-MYLANLABS-2020M1095674

PATIENT
  Age: 51 Year
  Sex: Male

DRUGS (1)
  1. EPINEPHRINE INJECTION USP AUTO-INJECTOR [Suspect]
     Active Substance: EPINEPHRINE
     Indication: HYPERSENSITIVITY
     Dosage: IF NEEDED
     Route: 030

REACTIONS (5)
  - Injection site pain [Not Recovered/Not Resolved]
  - Accidental exposure to product [Recovering/Resolving]
  - Headache [Recovered/Resolved]
  - Skin discolouration [Unknown]
  - Product confusion [Unknown]

NARRATIVE: CASE EVENT DATE: 20201112
